FAERS Safety Report 5340566-0 (Version None)
Quarter: 2007Q2

REPORT INFORMATION
  Report Type: 
  Country: None (occurrence: None)
  Receive Date: 20070405
  Receipt Date: 20070126
  Transmission Date: 20071010
  Serious: No
  Sender: FDA-Public Use
  Company Number: US200701005510

PATIENT
  Age: 69 Year
  Sex: Female

DRUGS (4)
  1. CYMBALTA [Suspect]
     Indication: ANXIETY
     Dosage: 60 MG
     Dates: start: 20070119
  2. ETANERCEPT (ETANERCEPT) [Concomitant]
  3. TYLENOL PM (DIPHENHYDRAMINE, PARACETAMOL) [Concomitant]
  4. DIOVAN (HYDROCHLOROTHIAZIDE, VALSARTAN) [Concomitant]

REACTIONS (2)
  - AKATHISIA [None]
  - TREMOR [None]
